FAERS Safety Report 7481039-9 (Version None)
Quarter: 2011Q2

REPORT INFORMATION
  Report Type: 
  Country: None (occurrence: None)
  Receive Date: 20110516
  Receipt Date: 20081001
  Transmission Date: 20111010
  Serious: Yes (Death)
  Sender: FDA-Public Use
  Company Number: US-BAYER-2011-006289

PATIENT
  Age: 56 Year
  Sex: Female
  Weight: 60 kg

DRUGS (8)
  1. ACETYLSALICYLIC ACID SRT [Concomitant]
     Dosage: 325 MG, QD
     Route: 048
  2. TRASYLOL [Suspect]
     Dosage: LOADING DOSE (200ML PUMP PRIME; 200ML BOLUS FOLLOWED BY BY INFUSION BY 50ML/HR)
     Route: 042
     Dates: start: 20020917, end: 20020917
  3. INSULIN [INSULIN] [Concomitant]
     Dosage: 10 UNITS PER HOUR
     Route: 042
     Dates: start: 20020917
  4. FENTANYL [Concomitant]
     Dosage: 550 THEN 200MCG
     Route: 042
     Dates: start: 20020917
  5. HEPARIN [Concomitant]
     Dosage: 25,000 UNITS
     Route: 042
     Dates: start: 20020917, end: 20020917
  6. MILRINONE [Concomitant]
     Dosage: 0.5MG PER KG PER MINUTE
     Route: 042
     Dates: start: 20020917, end: 20020917
  7. ZESTRIL [Concomitant]
     Dosage: 5 MG, QD
     Route: 048
  8. VANCOMYCIN [Concomitant]
     Dosage: 1 GRAM
     Route: 042
     Dates: start: 20020917

REACTIONS (12)
  - EMOTIONAL DISTRESS [None]
  - UNEVALUABLE EVENT [None]
  - INJURY [None]
  - DEATH [None]
  - STRESS [None]
  - PAIN [None]
  - ANXIETY [None]
  - HEART VALVE OPERATION [None]
  - CORONARY ARTERY BYPASS [None]
  - NERVOUSNESS [None]
  - CARDIAC FAILURE [None]
  - FEAR OF DEATH [None]
